FAERS Safety Report 7607397-X (Version None)
Quarter: 2011Q3

REPORT INFORMATION
  Report Type: 
  Country: None (occurrence: None)
  Receive Date: 20110713
  Receipt Date: 20110707
  Transmission Date: 20111222
  Serious: Yes (Life-Threatening, Hospitalization)
  Sender: FDA-Public Use
  Company Number: US-TYCO HEALTHCARE/MALLINCKRODT-T201101357

PATIENT
  Sex: Male

DRUGS (9)
  1. ATIVAN [Concomitant]
  2. EXALGO [Suspect]
     Indication: PAIN
  3. NYSTATIN [Concomitant]
  4. ACTIQ [Concomitant]
  5. OMEPRAZOLE [Concomitant]
  6. POTASSIUM [Concomitant]
  7. ADDERALL 10 [Concomitant]
  8. EXALGO [Suspect]
     Indication: SPINAL COLUMN STENOSIS
  9. EXALGO [Suspect]
     Indication: ARTHRITIS
     Dosage: 16 TO 24 MG PER DAY
     Route: 048
     Dates: start: 20110617, end: 20110707

REACTIONS (4)
  - PULSE PRESSURE DECREASED [None]
  - SOMNOLENCE [None]
  - RESPIRATORY DEPRESSION [None]
  - RESPIRATORY ARREST [None]
